FAERS Safety Report 22661262 (Version 1)
Quarter: 2023Q2

REPORT INFORMATION
  Report Type: Report from Study
  Country: US (occurrence: US)
  Receive Date: 20230630
  Receipt Date: 20230630
  Transmission Date: 20230722
  Serious: Yes (Hospitalization)
  Sender: FDA-Public Use
  Company Number: US-JAZZ PHARMACEUTICALS-2022-US-028057

PATIENT
  Sex: Male

DRUGS (3)
  1. EPIDIOLEX [Suspect]
     Active Substance: CANNABIDIOL
     Indication: Lennox-Gastaut syndrome
     Dosage: 3.4ML BY MOUTH EVERY MORNING AND 5.1ML BY MOUTH EVERY EVENING
     Route: 048
  2. EPIDIOLEX [Suspect]
     Active Substance: CANNABIDIOL
     Dosage: 3.4ML BY MOUTH EVERY MORNING AND 5.1ML BY MOUTH EVERY EVENING
     Route: 048
  3. EPIDIOLEX [Suspect]
     Active Substance: CANNABIDIOL
     Dosage: 3.4ML BY MOUTH EVERY MORNING AND 5.1ML BY MOUTH EVERY EVENING
     Route: 048

REACTIONS (2)
  - Vagal nerve stimulator implantation [Unknown]
  - Foot fracture [Unknown]
